FAERS Safety Report 9511434 (Version 1)
Quarter: 2013Q3

REPORT INFORMATION
  Report Type: Spontaneous
  Country: US (occurrence: None)
  Receive Date: 20130909
  Receipt Date: 20130909
  Transmission Date: 20140515
  Serious: Yes (Disabling)
  Sender: FDA-Public Use
  Company Number: None

PATIENT
  Age: 41 Year
  Sex: Female
  Weight: 95.26 kg

DRUGS (1)
  1. CIPROFLOXACIN HCL [Suspect]
     Indication: URINARY TRACT INFECTION
     Dosage: 1 PILL TWICE DAILY TAKEN BY MOUTH
     Route: 048
     Dates: start: 20130811, end: 20130814

REACTIONS (9)
  - Tendonitis [None]
  - Myalgia [None]
  - Muscle twitching [None]
  - Thyroid disorder [None]
  - Hepatic enzyme increased [None]
  - Vision blurred [None]
  - Feeling hot [None]
  - Abdominal pain [None]
  - Laboratory test abnormal [None]
